FAERS Safety Report 24681446 (Version 1)
Quarter: 2024Q4

REPORT INFORMATION
  Report Type: Report from Study
  Country: CA (occurrence: CA)
  Receive Date: 20241129
  Receipt Date: 20241129
  Transmission Date: 20250114
  Serious: Yes (Other)
  Sender: ABBVIE
  Company Number: CA-ABBVIE-6017181

PATIENT
  Age: 52 Year
  Sex: Male

DRUGS (1)
  1. BOTOX [Suspect]
     Active Substance: ONABOTULINUMTOXINA
     Indication: Muscle spasticity
     Dosage: TIME INTERVAL: AS NECESSARY: FREQUENCY:EVERY 3 MONTHS
     Route: 030
     Dates: start: 20230908, end: 20230908

REACTIONS (3)
  - Haemorrhage [Recovering/Resolving]
  - Electrocardiogram abnormal [Recovering/Resolving]
  - Weight decreased [Recovering/Resolving]

NARRATIVE: CASE EVENT DATE: 20240101
